FAERS Safety Report 5392150-0 (Version None)
Quarter: 2007Q3

REPORT INFORMATION
  Report Type: 
  Country: None (occurrence: None)
  Receive Date: 20070718
  Receipt Date: 20070718
  Transmission Date: 20080115
  Serious: Yes (Death, Hospitalization)
  Sender: FDA-Public Use
  Company Number: None

PATIENT
  Sex: Male
  Weight: 88.77 kg

DRUGS (1)
  1. TEMOZOLOMIDE [Suspect]
     Dosage: 3255 MG
     Dates: start: 20070531, end: 20070620

REACTIONS (1)
  - THROMBOCYTOPENIA [None]
